FAERS Safety Report 14031100 (Version 1)
Quarter: 2017Q4

REPORT INFORMATION
  Report Type: Report from Study
  Country: US (occurrence: US)
  Receive Date: 20171002
  Receipt Date: 20171002
  Transmission Date: 20180321
  Serious: Yes (Hospitalization)
  Sender: FDA-Public Use
  Company Number: US-JNJFOC-20170929831

PATIENT
  Sex: Female

DRUGS (12)
  1. XANAX [Concomitant]
     Active Substance: ALPRAZOLAM
  2. TYLENOL [Concomitant]
     Active Substance: ACETAMINOPHEN
  3. DEXAMETHASONE. [Concomitant]
     Active Substance: DEXAMETHASONE
  4. LOSARTAN POTASSIUM. [Concomitant]
     Active Substance: LOSARTAN POTASSIUM
  5. LIDOCAINE. [Concomitant]
     Active Substance: LIDOCAINE
  6. NPLATE [Concomitant]
     Active Substance: ROMIPLOSTIM
  7. PAROXETINE. [Concomitant]
     Active Substance: PAROXETINE
  8. ROSUVASTATIN CALCIUM. [Concomitant]
     Active Substance: ROSUVASTATIN CALCIUM
  9. IMBRUVICA [Suspect]
     Active Substance: IBRUTINIB
     Indication: CHRONIC LYMPHOCYTIC LEUKAEMIA
     Route: 048
     Dates: start: 20170920
  10. AZELASTINE. [Concomitant]
     Active Substance: AZELASTINE HYDROCHLORIDE
  11. ELIQUIS [Concomitant]
     Active Substance: APIXABAN
  12. KLOR-CON [Concomitant]
     Active Substance: POTASSIUM CHLORIDE

REACTIONS (2)
  - White blood cell count decreased [Unknown]
  - Haemoglobin decreased [Unknown]
